FAERS Safety Report 10735057 (Version 2)
Quarter: 2015Q1

REPORT INFORMATION
  Report Type: Report from Study
  Country: US (occurrence: US)
  Receive Date: 20150123
  Receipt Date: 20150203
  Transmission Date: 20150721
  Serious: Yes (Death)
  Sender: FDA-Public Use
  Company Number: US-INTERMUNE, INC.-201501IM008994

PATIENT
  Age: 75 Year
  Sex: Male
  Weight: 54.48 kg

DRUGS (1)
  1. PIRFENIDONE [Suspect]
     Active Substance: PIRFENIDONE
     Indication: IDIOPATHIC PULMONARY FIBROSIS
     Dosage: 2403 MG
     Route: 048
     Dates: start: 20130125

REACTIONS (1)
  - Death [Fatal]

NARRATIVE: CASE EVENT DATE: 20150117
